FAERS Safety Report 7718369-9 (Version None)
Quarter: 2011Q3

REPORT INFORMATION
  Report Type: 
  Country: None (occurrence: None)
  Receive Date: 20110830
  Receipt Date: 20110824
  Transmission Date: 20111222
  Serious: Yes (Hospitalization)
  Sender: FDA-Public Use
  Company Number: PHHY2011AR41720

PATIENT
  Sex: Female

DRUGS (1)
  1. ONBREZ [Suspect]
     Indication: HYDROTHORAX
     Dosage: 1 DF, QD
     Dates: start: 20110504, end: 20110509

REACTIONS (2)
  - CARDIAC DISORDER [None]
  - CHEST PAIN [None]
